FAERS Safety Report 9562847 (Version 2)
Quarter: 2018Q1

REPORT INFORMATION
  Report Type: Spontaneous
  Country: US (occurrence: US)
  Receive Date: 20130927
  Receipt Date: 20180104
  Transmission Date: 20180509
  Serious: Yes (Hospitalization, Other)
  Sender: FDA-Public Use
  Company Number: US-009507513-1309USA011343

PATIENT
  Sex: Female
  Weight: 63.49 kg

DRUGS (4)
  1. IBANDRONATE SODIUM. [Suspect]
     Active Substance: IBANDRONATE SODIUM
     Dosage: UNK
     Dates: start: 2003, end: 2011
  2. BONIVA [Suspect]
     Active Substance: IBANDRONATE SODIUM
     Dosage: UNK
     Dates: start: 2003, end: 2011
  3. FOSAMAX [Suspect]
     Active Substance: ALENDRONATE SODIUM
     Indication: BONE DENSITY DECREASED
     Dosage: 70 MG, UNK
     Route: 048
     Dates: start: 200305, end: 200810
  4. ALENDRONATE SODIUM. [Suspect]
     Active Substance: ALENDRONATE SODIUM
     Indication: BONE DENSITY DECREASED
     Dosage: 70 MG, UNK
     Route: 048
     Dates: start: 200810, end: 201106

REACTIONS (11)
  - Fall [Unknown]
  - Deep vein thrombosis [Recovered/Resolved]
  - Anaemia [Unknown]
  - Fracture nonunion [Unknown]
  - Dental operation [Unknown]
  - Urinary retention postoperative [Unknown]
  - Hypertension [Unknown]
  - Femur fracture [Unknown]
  - Deep vein thrombosis [Not Recovered/Not Resolved]
  - Antiphospholipid antibodies positive [Unknown]
  - Bursitis [Unknown]

NARRATIVE: CASE EVENT DATE: 201112
